FAERS Safety Report 11569249 (Version 1)
Quarter: 2015Q3

REPORT INFORMATION
  Report Type: Report from Study
  Country: US (occurrence: US)
  Receive Date: 20150929
  Receipt Date: 20150929
  Transmission Date: 20151125
  Serious: Yes (Other)
  Sender: FDA-Public Use
  Company Number: US-ABBVIE-15K-163-1467834-00

PATIENT
  Sex: Female

DRUGS (1)
  1. HUMIRA [Suspect]
     Active Substance: ADALIMUMAB
     Indication: HIDRADENITIS
     Route: 065
     Dates: start: 2012

REACTIONS (5)
  - Hidradenitis [Not Recovered/Not Resolved]
  - Cellulitis [Recovered/Resolved]
  - Hyperthyroidism [Unknown]
  - Keloid scar [Not Recovered/Not Resolved]
  - Menorrhagia [Unknown]
